FAERS Safety Report 5419405-5 (Version None)
Quarter: 2007Q3

REPORT INFORMATION
  Report Type: 
  Country: None (occurrence: None)
  Receive Date: 20070817
  Receipt Date: 20070817
  Transmission Date: 20080115
  Serious: No
  Sender: FDA-Public Use
  Company Number: None

PATIENT
  Sex: Male
  Weight: 61.2356 kg

DRUGS (1)
  1. GALALIUM IV DYE [Suspect]
     Dates: start: 19900520, end: 19900520

REACTIONS (6)
  - CONTRAST MEDIA REACTION [None]
  - HYPERHIDROSIS [None]
  - NERVOUSNESS [None]
  - PARAESTHESIA [None]
  - PRURITUS [None]
  - STRESS [None]
